FAERS Safety Report 17435585 (Version 1)
Quarter: 2020Q1

REPORT INFORMATION
  Report Type: Spontaneous
  Country: US (occurrence: US)
  Receive Date: 20200219
  Receipt Date: 20200219
  Transmission Date: 20200409
  Serious: No
  Sender: FDA-Public Use
  Company Number: US-VERTEX PHARMACEUTICALS-2020-003051

PATIENT
  Sex: Female

DRUGS (2)
  1. TRIKAFTA [Suspect]
     Active Substance: ELEXACAFTOR\IVACAFTOR\TEZACAFTOR
     Indication: CYSTIC FIBROSIS
     Dosage: UNK
     Route: 048
  2. AZTREONAM LYSINE [Suspect]
     Active Substance: AZTREONAM LYSINE
     Indication: CYSTIC FIBROSIS
     Dosage: 75 MG, TID EVERY OTHER MONTH

REACTIONS (17)
  - Diarrhoea [Not Recovered/Not Resolved]
  - Emotional disorder [Unknown]
  - Anxiety [Unknown]
  - Eructation [Not Recovered/Not Resolved]
  - Irritability [Unknown]
  - Headache [Unknown]
  - Sputum increased [Unknown]
  - Taste disorder [Unknown]
  - Sleep disorder [Unknown]
  - Mood altered [Not Recovered/Not Resolved]
  - Anger [Not Recovered/Not Resolved]
  - Cough [Recovered/Resolved]
  - Paranasal sinus hypersecretion [Unknown]
  - Anosmia [Not Recovered/Not Resolved]
  - Depressed mood [Not Recovered/Not Resolved]
  - Night sweats [Unknown]
  - Nausea [Unknown]
